FAERS Safety Report 13139126 (Version 1)
Quarter: 2017Q1

REPORT INFORMATION
  Report Type: Spontaneous
  Country: IT (occurrence: IT)
  Receive Date: 20170123
  Receipt Date: 20170123
  Transmission Date: 20170428
  Serious: Yes (Other)
  Sender: FDA-Public Use
  Company Number: IT-TEVA-564823ISR

PATIENT
  Age: 74 Year
  Sex: Male

DRUGS (7)
  1. LEVODOPA [Suspect]
     Active Substance: LEVODOPA
     Indication: PARKINSON^S DISEASE
     Dosage: 600 MILLIGRAM DAILY;
     Route: 065
  2. AMANTADINE [Concomitant]
     Active Substance: AMANTADINE
     Indication: PARKINSON^S DISEASE
     Dosage: 50 MILLIGRAM DAILY;
     Route: 065
  3. RASAGILINE [Concomitant]
     Active Substance: RASAGILINE
     Indication: PARKINSON^S DISEASE
     Dosage: 1 MILLIGRAM DAILY;
     Route: 065
  4. LEVODOPA [Suspect]
     Active Substance: LEVODOPA
     Dosage: UP TO 1400 MG/DAY
     Route: 065
  5. PRAMIPEXOLE. [Suspect]
     Active Substance: PRAMIPEXOLE
     Dosage: 2.1 MILLIGRAM DAILY;
     Route: 065
  6. PRAMIPEXOLE. [Suspect]
     Active Substance: PRAMIPEXOLE
     Dosage: 0.7MG UP TO 5 TIMES PER DAY
     Route: 065
  7. PRAMIPEXOLE. [Suspect]
     Active Substance: PRAMIPEXOLE
     Indication: PARKINSON^S DISEASE
     Dosage: 2.1 MILLIGRAM DAILY;
     Route: 065

REACTIONS (8)
  - Dopamine dysregulation syndrome [Recovering/Resolving]
  - Product formulation issue [Unknown]
  - Hypomania [Unknown]
  - Drug abuse [Recovered/Resolved]
  - Mood altered [Unknown]
  - Dyskinesia [Unknown]
  - Depression [Unknown]
  - Agitation [Unknown]
